FAERS Safety Report 15180720 (Version 4)
Quarter: 2020Q1

REPORT INFORMATION
  Report Type: Report from Study
  Country: US (occurrence: US)
  Receive Date: 20180723
  Receipt Date: 20200224
  Transmission Date: 20200409
  Serious: Yes (Life-Threatening, Hospitalization, Disabling)
  Sender: FDA-Public Use
  Company Number: US-ROCHE-2154115

PATIENT
  Age: 56 Year
  Sex: Male
  Weight: 72.8 kg

DRUGS (35)
  1. AXICABTAGENE CILOLEUCEL [Suspect]
     Active Substance: AXICABTAGENE CILOLEUCEL
     Indication: DIFFUSE LARGE B-CELL LYMPHOMA REFRACTORY
     Dosage: 1 X 10^6 / KG, 68.0ML
     Route: 042
     Dates: start: 20180326, end: 20180326
  2. ALPRAZOLAM. [Concomitant]
     Active Substance: ALPRAZOLAM
  3. BUPROPION. [Concomitant]
     Active Substance: BUPROPION
  4. PANTOPRAZOLE [Concomitant]
     Active Substance: PANTOPRAZOLE
  5. LEVOFLOXACIN. [Concomitant]
     Active Substance: LEVOFLOXACIN
  6. BACTRIM [Concomitant]
     Active Substance: SULFAMETHOXAZOLE\TRIMETHOPRIM
  7. DOXORUBICIN [Concomitant]
     Active Substance: DOXORUBICIN
     Dosage: 6 CYCLES OF CHEMOTHERAPY
     Route: 065
  8. AXICABTAGENE CILOLEUCEL [Suspect]
     Active Substance: AXICABTAGENE CILOLEUCEL
     Dosage: 1 X 10^6 / KG, 68.0ML
     Route: 042
     Dates: start: 20180327, end: 20180327
  9. ACYCLOVIR [ACICLOVIR] [Concomitant]
     Active Substance: ACYCLOVIR
  10. AMITRIPTYLINE [Concomitant]
     Active Substance: AMITRIPTYLINE
  11. OMEPRAZOLE. [Concomitant]
     Active Substance: OMEPRAZOLE
  12. VINCRISTINE [Concomitant]
     Active Substance: VINCRISTINE
     Dosage: 6 CYCLES OF CHEMOTHERAPY
     Route: 065
  13. OXALIPLATINUM [Concomitant]
     Active Substance: OXALIPLATIN
  14. FILGRASTIM [Concomitant]
     Active Substance: FILGRASTIM
  15. ATEZOLIZUMAB. [Suspect]
     Active Substance: ATEZOLIZUMAB
     Indication: DIFFUSE LARGE B-CELL LYMPHOMA REFRACTORY
     Route: 042
     Dates: start: 20180327, end: 20180327
  16. DULOXETINE. [Concomitant]
     Active Substance: DULOXETINE
  17. ONDANSETRON [Concomitant]
     Active Substance: ONDANSETRON
  18. MEPRON [Concomitant]
     Active Substance: ATOVAQUONE
  19. CYCLOPHOSPHAMIDE. [Suspect]
     Active Substance: CYCLOPHOSPHAMIDE
     Indication: BONE MARROW CONDITIONING REGIMEN
     Dosage: 6 CYCLES OF CHEMOTHERAPY
     Route: 042
     Dates: start: 20180321, end: 20180323
  20. FLUDARABINE [Suspect]
     Active Substance: FLUDARABINE PHOSPHATE
     Indication: BONE MARROW CONDITIONING REGIMEN
     Route: 042
     Dates: start: 20180321, end: 20180323
  21. DOCUSATE [Concomitant]
     Active Substance: DOCUSATE
  22. NOXAFIL [Concomitant]
     Active Substance: POSACONAZOLE
  23. PREDNISONE. [Concomitant]
     Active Substance: PREDNISONE
     Dosage: 6 CYCLES OF CHEMOTHERAPY
     Route: 065
  24. FLUORODEOXYGLUCOSE 18F [Concomitant]
     Indication: COLITIS
  25. ALLOPURINOL. [Concomitant]
     Active Substance: ALLOPURINOL
  26. GABAPENTIN. [Concomitant]
     Active Substance: GABAPENTIN
  27. HYDROMORPHONE [Concomitant]
     Active Substance: HYDROMORPHONE
  28. MORPHINE [Concomitant]
     Active Substance: MORPHINE
  29. ATEZOLIZUMAB. [Suspect]
     Active Substance: ATEZOLIZUMAB
     Route: 042
     Dates: start: 20180423, end: 20180427
  30. LIPITOR [Concomitant]
     Active Substance: ATORVASTATIN CALCIUM
  31. FLUDARABINE [Concomitant]
     Active Substance: FLUDARABINE PHOSPHATE
  32. KEPPRA [Concomitant]
     Active Substance: LEVETIRACETAM
  33. METHOTREXATE. [Concomitant]
     Active Substance: METHOTREXATE
     Dosage: 5 INTRATHECAL TREATMENTS
     Route: 065
  34. GEMZAR [Concomitant]
     Active Substance: GEMCITABINE HYDROCHLORIDE
  35. BENDAMUSTINE [Concomitant]
     Active Substance: BENDAMUSTINE

REACTIONS (4)
  - Myelodysplastic syndrome [Not Recovered/Not Resolved]
  - Pyrexia [Recovered/Resolved]
  - Pneumonia [Recovered/Resolved]
  - Febrile neutropenia [Recovered/Resolved]

NARRATIVE: CASE EVENT DATE: 20180508
